FAERS Safety Report 9006036 (Version 1)
Quarter: 2013Q1

REPORT INFORMATION
  Report Type: Report from Study
  Country: AU (occurrence: AU)
  Receive Date: 20130109
  Receipt Date: 20130109
  Transmission Date: 20140127
  Serious: Yes (Other)
  Sender: FDA-Public Use
  Company Number: PHHY2013AU001714

PATIENT
  Age: 56 Year
  Sex: Female

DRUGS (5)
  1. CLOZAPINE [Suspect]
  2. DIAZEPAM [Suspect]
  3. FERROUS SULFATE [Suspect]
  4. PANTOPRAZOLE SODIUM [Suspect]
  5. VALPROATE SODIUM [Suspect]

REACTIONS (3)
  - Clostridial infection [Unknown]
  - Deep vein thrombosis [Unknown]
  - Neuroleptic malignant syndrome [Unknown]
